FAERS Safety Report 6220820-0 (Version None)
Quarter: 2009Q2

REPORT INFORMATION
  Report Type: 
  Country: None (occurrence: None)
  Receive Date: 20090605
  Receipt Date: 20090525
  Transmission Date: 20091009
  Serious: Yes (Hospitalization)
  Sender: FDA-Public Use
  Company Number: FR-WYE-H06396308

PATIENT
  Age: 49 Year
  Sex: Female

DRUGS (9)
  1. CORDARONE [Suspect]
     Indication: CARDIAC DISORDER
     Dosage: ORAL
     Route: 048
     Dates: start: 20080905, end: 20080907
  2. CORDARONE [Suspect]
     Indication: TACHYCARDIA
     Dosage: ORAL
     Route: 048
     Dates: start: 20080905, end: 20080907
  3. TIENAM (CILASTATIN/IMIPENEM, ) [Suspect]
     Indication: ESCHERICHIA INFECTION
     Dosage: INTRAVENOUS
     Route: 042
     Dates: start: 20080827, end: 20080908
  4. MIDAZOLAM HCL [Concomitant]
  5. MORPHINE HYDROCHLORIDE ^AGUETTANT^ (MORPHINE HYDROCHLORIDE) [Concomitant]
  6. ATRAPID HUMAN (INSULIN HUMAN) [Concomitant]
  7. LINEZOLID [Concomitant]
  8. ALBUMIN (HUMAN) [Concomitant]
  9. CALCIPARINE [Concomitant]

REACTIONS (6)
  - BLOOD DISORDER [None]
  - CHOLESTASIS [None]
  - CONDITION AGGRAVATED [None]
  - CYTOLYTIC HEPATITIS [None]
  - HAEMODYNAMIC INSTABILITY [None]
  - NERVOUS SYSTEM DISORDER [None]
